FAERS Safety Report 9254425 (Version 1)
Quarter: 2013Q2

REPORT INFORMATION
  Report Type: Spontaneous
  Country: US (occurrence: None)
  Receive Date: 20130422
  Receipt Date: 20130422
  Transmission Date: 20140414
  Serious: Yes (Other)
  Sender: FDA-Public Use
  Company Number: SYM-2013-02757

PATIENT
  Age: 58 Year
  Sex: Female

DRUGS (1)
  1. ZYCLARA [Suspect]
     Indication: ACTINIC KERATOSIS
     Dosage: TOPICAL

REACTIONS (10)
  - Influenza like illness [None]
  - Chest pain [None]
  - Chest discomfort [None]
  - Dyspnoea [None]
  - Headache [None]
  - Fatigue [None]
  - Skin reaction [None]
  - Rash macular [None]
  - Erythema [None]
  - Activities of daily living impaired [None]
